FAERS Safety Report 8176027-3 (Version None)
Quarter: 2012Q1

REPORT INFORMATION
  Report Type: 
  Country: None (occurrence: None)
  Receive Date: 20120301
  Receipt Date: 20120223
  Transmission Date: 20120608
  Serious: Yes (Other)
  Sender: FDA-Public Use
  Company Number: CA-UCBSA-051381

PATIENT
  Age: 49 Year
  Sex: Female

DRUGS (12)
  1. FOLIC ACID [Concomitant]
     Indication: RHEUMATOID ARTHRITIS
     Route: 048
     Dates: start: 20040101
  2. PLAQUENIL [Concomitant]
     Indication: RHEUMATOID ARTHRITIS
     Route: 048
     Dates: start: 20040101
  3. NEXIUM [Concomitant]
     Route: 048
     Dates: start: 20040101
  4. LAXIX [Concomitant]
     Indication: SWELLING
     Route: 048
  5. CIMZIA [Suspect]
     Indication: RHEUMATOID ARTHRITIS
     Route: 058
     Dates: start: 20111215
  6. AMOXICILLIN [Concomitant]
     Indication: PAIN
     Route: 048
     Dates: start: 20120207
  7. OXYCONTIN [Concomitant]
     Indication: PAIN
     Route: 048
     Dates: start: 20040101
  8. CITALOPRAM HYDROBROMIDE [Concomitant]
     Indication: ANALGESIC DRUG LEVEL ABOVE THERAPEUTIC
     Dosage: DOSE PER INTAKE: 2 TABS
     Route: 048
     Dates: start: 20110101
  9. PREDNISONE TAB [Concomitant]
     Indication: RHEUMATOID ARTHRITIS
     Route: 048
     Dates: start: 20040101
  10. OXYCONTIN [Concomitant]
     Route: 048
     Dates: start: 20040101
  11. NEXIUM [Concomitant]
     Indication: ABDOMINAL PAIN UPPER
     Route: 048
     Dates: start: 20040101
  12. OXYCONTIN [Concomitant]
     Dosage: 20 MG: WHEN REQUIRED
     Route: 048
     Dates: start: 20040101

REACTIONS (3)
  - HERPES SIMPLEX [None]
  - PAIN [None]
  - OEDEMA PERIPHERAL [None]
